FAERS Safety Report 26068205 (Version 1)
Quarter: 2025Q4

REPORT INFORMATION
  Report Type: Spontaneous
  Country: US (occurrence: US)
  Receive Date: 20251120
  Receipt Date: 20251120
  Transmission Date: 20260117
  Serious: No
  Sender: JOHNSON AND JOHNSON
  Company Number: US-VIIV HEALTHCARE-US2025AMR144135

PATIENT
  Sex: Male

DRUGS (2)
  1. RILPIVIRINE [Suspect]
     Active Substance: RILPIVIRINE
     Indication: HIV infection
     Dosage: UNK CABOTEGRAVIR 600 MG (3 ML) AND RILPIVIRINE 900 MG (3 ML)
     Route: 030
  2. CABOTEGRAVIR [Suspect]
     Active Substance: CABOTEGRAVIR
     Indication: HIV infection
     Dosage: UNK CABOTEGRAVIR 600 MG (3 ML) AND RILPIVIRINE 900 MG (3 ML)
     Route: 030

REACTIONS (3)
  - Discomfort [Unknown]
  - Contusion [Recovered/Resolved]
  - Pain [Unknown]
